FAERS Safety Report 9834423 (Version 1)
Quarter: 2014Q1

REPORT INFORMATION
  Report Type: Spontaneous
  Country: US (occurrence: US)
  Receive Date: 20140122
  Receipt Date: 20140122
  Transmission Date: 20141002
  Serious: Yes (Other)
  Sender: FDA-Public Use
  Company Number: US-ENDO PHARMACEUTICALS INC.-PERC20140008

PATIENT
  Sex: Male

DRUGS (7)
  1. MORPHINE SULFATE ER [Suspect]
     Indication: PAIN
     Route: 048
     Dates: start: 2012
  2. MORPHINE SULFATE ER [Suspect]
     Route: 048
  3. MORPHINE SULFATE ER [Suspect]
     Dosage: UNKNOWN
     Route: 048
  4. PERCOCET [Suspect]
     Indication: PAIN
     Dosage: UNKNOWN
     Route: 048
     Dates: end: 2003
  5. PERCOCET [Suspect]
     Dosage: UNKNOWN
     Route: 048
  6. MORPHINE SULFATE [Suspect]
     Indication: PAIN
     Route: 048
     Dates: start: 2012
  7. MORPHINE SULFATE [Suspect]
     Route: 048

REACTIONS (3)
  - Suicide attempt [Recovered/Resolved]
  - Suicidal ideation [Not Recovered/Not Resolved]
  - Drug ineffective [Not Recovered/Not Resolved]
